FAERS Safety Report 25085490 (Version 1)
Quarter: 2025Q1

REPORT INFORMATION
  Report Type: Spontaneous
  Country: FR (occurrence: FR)
  Receive Date: 20250317
  Receipt Date: 20250317
  Transmission Date: 20250409
  Serious: Yes (Life-Threatening, Hospitalization)
  Sender: CIPLA
  Company Number: FR-AFSSAPS-MA2025000159

PATIENT

DRUGS (7)
  1. EMTRICITABINE\TENOFOVIR [Suspect]
     Active Substance: EMTRICITABINE\TENOFOVIR
     Route: 064
     Dates: start: 20241224, end: 20250108
  2. EPIVIR [Suspect]
     Active Substance: LAMIVUDINE
     Route: 064
     Dates: start: 20250108, end: 20250207
  3. RETROVIR [Suspect]
     Active Substance: ZIDOVUDINE
     Route: 064
     Dates: start: 20250108
  4. RETROVIR [Suspect]
     Active Substance: ZIDOVUDINE
     Route: 064
     Dates: start: 20250108, end: 20250204
  5. RETROVIR [Suspect]
     Active Substance: ZIDOVUDINE
     Route: 064
     Dates: start: 20250205, end: 20250207
  6. VIRAMUNE [Suspect]
     Active Substance: NEVIRAPINE
     Route: 064
     Dates: start: 20250108, end: 20250108
  7. TIVICAY [Suspect]
     Active Substance: DOLUTEGRAVIR SODIUM
     Route: 064
     Dates: start: 20241224, end: 20250108

REACTIONS (2)
  - Metabolic acidosis [Recovered/Resolved]
  - Foetal exposure during pregnancy [Unknown]

NARRATIVE: CASE EVENT DATE: 20250207
